FAERS Safety Report 5095505-7 (Version None)
Quarter: 2006Q3

REPORT INFORMATION
  Report Type: 
  Country: None (occurrence: None)
  Receive Date: 20060901
  Receipt Date: 20060901
  Transmission Date: 20061208
  Serious: Yes (Life-Threatening, Hospitalization, Disabling, Other)
  Sender: FDA-Public Use
  Company Number: None

PATIENT
  Age: 32 Year
  Sex: Female
  Weight: 55.7924 kg

DRUGS (2)
  1. ROCEPHIN [Suspect]
     Indication: ADVERSE DRUG REACTION
     Dates: start: 20040503
  2. BACTRIM [Suspect]
     Indication: URINARY TRACT INFECTION
     Dates: start: 20040420, end: 20040501

REACTIONS (4)
  - EYE PRURITUS [None]
  - ORAL PRURITUS [None]
  - RASH GENERALISED [None]
  - VIRAL INFECTION [None]
